FAERS Safety Report 4507806-9 (Version None)
Quarter: 2004Q4

REPORT INFORMATION
  Report Type: 
  Country: None (occurrence: None)
  Receive Date: 20041123
  Receipt Date: 20041111
  Transmission Date: 20050328
  Serious: Yes (Other)
  Sender: FDA-Public Use
  Company Number: CA-BRISTOL-MYERS SQUIBB COMPANY-12764890

PATIENT
  Age: 59 Year
  Sex: Male

DRUGS (8)
  1. VEPESID [Suspect]
     Indication: BONE MARROW TRANSPLANT
     Route: 042
     Dates: start: 20040930, end: 20040930
  2. HYDROCHLOROTHIAZIDE [Concomitant]
  3. RAMIPRIL [Concomitant]
  4. BISOPROLOL FUMARATE [Concomitant]
  5. FUROSEMIDE [Concomitant]
  6. ONDANSETRON [Concomitant]
  7. LORAZEPAM [Concomitant]
  8. DEXAMETHASONE [Concomitant]

REACTIONS (2)
  - BLOOD CREATININE INCREASED [None]
  - HYPOTENSION [None]
